FAERS Safety Report 16341649 (Version 3)
Quarter: 2020Q1

REPORT INFORMATION
  Report Type: Spontaneous
  Country: DE (occurrence: DE)
  Receive Date: 20190522
  Receipt Date: 20200317
  Transmission Date: 20200409
  Serious: Yes (Other)
  Sender: FDA-Public Use
  Company Number: PHHY2019DE105041

PATIENT
  Sex: Female
  Weight: 84 kg

DRUGS (1)
  1. BIOSAN BASIS [Suspect]
     Active Substance: DIETARY SUPPLEMENT
     Indication: PROBIOTIC THERAPY
     Dosage: 1 DF, QD (IN THE EVENING)
     Route: 048
     Dates: start: 20190415, end: 20190417

REACTIONS (7)
  - Haematochezia [Recovered/Resolved]
  - Nausea [Recovered/Resolved]
  - Vomiting [Recovered/Resolved]
  - Muscle spasms [Recovered/Resolved]
  - Diarrhoea [Recovered/Resolved]
  - Faeces discoloured [Recovered/Resolved]
  - Abdominal pain upper [Recovered/Resolved]

NARRATIVE: CASE EVENT DATE: 20190415
